FAERS Safety Report 12614768 (Version 1)
Quarter: 2016Q3

REPORT INFORMATION
  Report Type: Spontaneous
  Country: GB (occurrence: GB)
  Receive Date: 20160802
  Receipt Date: 20160802
  Transmission Date: 20161109
  Serious: Yes (Other)
  Sender: FDA-Public Use
  Company Number: GB-TEVA-679658ACC

PATIENT
  Age: 63 Year
  Sex: Male
  Weight: 95 kg

DRUGS (9)
  1. VENTOLIN [Concomitant]
     Active Substance: ALBUTEROL SULFATE
     Route: 055
     Dates: start: 20151104
  2. ATORVASTATIN [Concomitant]
     Active Substance: ATORVASTATIN
     Dosage: 1 DOSAGE FORMS DAILY;
     Dates: start: 20160524, end: 20160621
  3. METFORMIN [Concomitant]
     Active Substance: METFORMIN HYDROCHLORIDE
     Dosage: TAKE ONE WITH BREAKFAST AND TWO WITH EVENING MEAL
     Dates: start: 20151104
  4. CLENIL MODULITE [Concomitant]
     Active Substance: BECLOMETHASONE DIPROPIONATE
     Dosage: 4 DOSAGE FORMS DAILY;
     Route: 055
     Dates: start: 20151104
  5. VARENICLINE [Concomitant]
     Active Substance: VARENICLINE
     Dosage: 2 DOSAGE FORMS DAILY;
     Dates: start: 20160627, end: 20160711
  6. GLIMEPIRIDE. [Suspect]
     Active Substance: GLIMEPIRIDE
     Dates: start: 20151104
  7. DIPROBASE [Concomitant]
     Active Substance: CHLOROCRESOL
     Indication: DRY SKIN
     Dosage: DAILY
     Route: 061
     Dates: start: 20151104
  8. QUININE [Concomitant]
     Active Substance: QUININE
     Dosage: 1 DOSAGE FORMS DAILY; EACH NIGHT
     Dates: start: 20160621
  9. SERTRALINE [Concomitant]
     Active Substance: SERTRALINE HYDROCHLORIDE
     Dosage: 1 DOSAGE FORMS DAILY;
     Dates: start: 20151104

REACTIONS (3)
  - Hypoglycaemia [Recovering/Resolving]
  - Fatigue [Unknown]
  - Oral candidiasis [Recovering/Resolving]

NARRATIVE: CASE EVENT DATE: 20160712
